FAERS Safety Report 4790498-1 (Version None)
Quarter: 2005Q3

REPORT INFORMATION
  Report Type: 
  Country: None (occurrence: None)
  Receive Date: 20050914
  Receipt Date: 20041202
  Transmission Date: 20060218
  Serious: Yes (Hospitalization, Other)
  Sender: FDA-Public Use
  Company Number: 163-20785-04120242

PATIENT
  Age: 61 Year
  Sex: Male

DRUGS (8)
  1. THALOMID [Suspect]
     Indication: MULTIPLE MYELOMA
     Dosage: 100MG QD ESCALATING TO 200MG AS TOLERATED, DAILY, ORAL  : 250 MG, DAILY, ORAL
     Route: 048
     Dates: start: 20040302, end: 20040726
  2. THALOMID [Suspect]
     Indication: PLASMACYTOMA
     Dosage: 100MG QD ESCALATING TO 200MG AS TOLERATED, DAILY, ORAL  : 250 MG, DAILY, ORAL
     Route: 048
     Dates: start: 20040302, end: 20040726
  3. THALOMID [Suspect]
     Indication: MULTIPLE MYELOMA
     Dosage: 100MG QD ESCALATING TO 200MG AS TOLERATED, DAILY, ORAL  : 250 MG, DAILY, ORAL
     Route: 048
     Dates: start: 20041101
  4. THALOMID [Suspect]
     Indication: PLASMACYTOMA
     Dosage: 100MG QD ESCALATING TO 200MG AS TOLERATED, DAILY, ORAL  : 250 MG, DAILY, ORAL
     Route: 048
     Dates: start: 20041101
  5. CARDURA [Concomitant]
  6. PROTONIX [Concomitant]
  7. DEXAMETHASONE [Concomitant]
  8. AREDIA [Concomitant]

REACTIONS (3)
  - DEEP VEIN THROMBOSIS [None]
  - DISCOMFORT [None]
  - SWELLING [None]
